FAERS Safety Report 10073912 (Version 1)
Quarter: 2014Q2

REPORT INFORMATION
  Report Type: Spontaneous
  Country: GB (occurrence: GB)
  Receive Date: 20140412
  Receipt Date: 20140412
  Transmission Date: 20141212
  Serious: Yes (Hospitalization, Other)
  Sender: FDA-Public Use
  Company Number: GB-009507513-1404GBR004359

PATIENT
  Age: 27 Year
  Sex: Female
  Weight: 65 kg

DRUGS (1)
  1. NEXPLANON [Suspect]
     Indication: CONTRACEPTIVE IMPLANT
     Route: 059
     Dates: start: 20120612, end: 201305

REACTIONS (2)
  - Abortion spontaneous [Recovering/Resolving]
  - Amenorrhoea [Not Recovered/Not Resolved]
